FAERS Safety Report 6218501-2 (Version None)
Quarter: 2009Q2

REPORT INFORMATION
  Report Type: 
  Country: None (occurrence: None)
  Receive Date: 20090604
  Receipt Date: 20090604
  Transmission Date: 20091009
  Serious: Yes (Other)
  Sender: FDA-Public Use
  Company Number: None

PATIENT
  Age: 59 Year
  Sex: Female
  Weight: 86.1834 kg

DRUGS (2)
  1. CYMBALTA [Suspect]
     Indication: DEPRESSION
     Dosage: 60MG ONCE A DAY
     Dates: start: 20060801, end: 20090601
  2. CYMBALTA [Suspect]
     Indication: FIBROMYALGIA
     Dosage: 60MG ONCE A DAY
     Dates: start: 20060801, end: 20090601

REACTIONS (6)
  - ASTHENIA [None]
  - DEPRESSION [None]
  - FEELING ABNORMAL [None]
  - MUSCULAR WEAKNESS [None]
  - PARAESTHESIA [None]
  - SOMNOLENCE [None]
